FAERS Safety Report 4350672-5 (Version None)
Quarter: 2004Q2

REPORT INFORMATION
  Report Type: 
  Country: None (occurrence: None)
  Receive Date: 20040427
  Receipt Date: 20040419
  Transmission Date: 20050107
  Serious: Yes (Hospitalization)
  Sender: FDA-Public Use
  Company Number: MK200402-0073-2

PATIENT

DRUGS (1)
  1. ANAFRANIL CAP [Suspect]

REACTIONS (4)
  - DRUG WITHDRAWAL SYNDROME [None]
  - HYPERTONIA NEONATAL [None]
  - IRRITABILITY [None]
  - MATERNAL DRUGS AFFECTING FOETUS [None]
